FAERS Safety Report 4873766-4 (Version None)
Quarter: 2005Q4

REPORT INFORMATION
  Report Type: 
  Country: None (occurrence: None)
  Receive Date: 20051201
  Receipt Date: 20050807
  Transmission Date: 20060501
  Serious: No
  Sender: FDA-Public Use
  Company Number: 2005PV000968

PATIENT
  Age: 75 Year
  Sex: Male
  Weight: 114.76 kg

DRUGS (19)
  1. BYETTA [Suspect]
     Indication: DIABETES MELLITUS NON-INSULIN-DEPENDENT
     Dosage: SEE IMAGE
     Route: 058
     Dates: start: 20050616, end: 20050716
  2. BYETTA [Suspect]
     Indication: DIABETES MELLITUS NON-INSULIN-DEPENDENT
     Dosage: SEE IMAGE
     Route: 058
     Dates: start: 20050717
  3. METFORMIN [Concomitant]
  4. AVANDIA [Concomitant]
  5. GLYBURIDE [Concomitant]
  6. ATENOLOL [Concomitant]
  7. ZOCOR [Concomitant]
  8. CAPTOPRIL [Concomitant]
  9. TRICOR [Concomitant]
  10. PLAVIX [Concomitant]
  11. FUROSEMIDE [Concomitant]
  12. CLINDAMYCIN [Concomitant]
  13. PATENOL [Concomitant]
  14. ASCORBIC ACID [Concomitant]
  15. VITAMIN E [Concomitant]
  16. CENTRUM [Concomitant]
  17. ASPIRIN [Concomitant]
  18. STOOL SOFTENER [Concomitant]
  19. OMEGA 3 [Concomitant]

REACTIONS (3)
  - DRUG DOSE OMISSION [None]
  - DRUG INEFFECTIVE [None]
  - GLYCOSYLATED HAEMOGLOBIN INCREASED [None]
